FAERS Safety Report 10182516 (Version 1)
Quarter: 2014Q2

REPORT INFORMATION
  Report Type: Spontaneous
  Country: US (occurrence: None)
  Receive Date: 20140519
  Receipt Date: 20140519
  Transmission Date: 20141212
  Serious: Yes (Other)
  Sender: FDA-Public Use
  Company Number: None

PATIENT
  Age: 49 Year
  Sex: Male
  Weight: 63.05 kg

DRUGS (1)
  1. CIPROFLOXACIN [Suspect]
     Indication: PROSTATE INFECTION
     Route: 048
     Dates: start: 20140510, end: 20140512

REACTIONS (8)
  - Tendon disorder [None]
  - Muscle spasms [None]
  - Nervous system disorder [None]
  - Balance disorder [None]
  - Dizziness [None]
  - Time perception altered [None]
  - Nightmare [None]
  - Disturbance in attention [None]
